FAERS Safety Report 13738980 (Version 1)
Quarter: 2017Q3

REPORT INFORMATION
  Report Type: Report from Study
  Country: US (occurrence: US)
  Receive Date: 20170710
  Receipt Date: 20170710
  Transmission Date: 20171127
  Serious: Yes (Other)
  Sender: FDA-Public Use
  Company Number: US-SAOL THERAPEUTICS-2017SAO00534

PATIENT
  Age: 51 Year
  Sex: Female
  Weight: 48.73 kg

DRUGS (15)
  1. COMPOUNDED BACLOFEN [Suspect]
     Active Substance: BACLOFEN
     Dosage: 78.51 ?G, \DAY
     Route: 037
     Dates: start: 20151013
  2. COMPOUNDED BACLOFEN [Suspect]
     Active Substance: BACLOFEN
     Dosage: 72.68 ?G, \DAY
     Route: 037
     Dates: start: 20161028
  3. MORPHINE [Suspect]
     Active Substance: MORPHINE
     Dosage: 0.2499 MG/DAY
     Route: 037
     Dates: start: 20151028
  4. COMPOUNDED BACLOFEN [Suspect]
     Active Substance: BACLOFEN
     Dosage: 46.29 ?G, \DAY
     Dates: start: 20151125
  5. MORPHINE [Suspect]
     Active Substance: MORPHINE
     Dosage: 0.4845 MG/DAY
     Route: 037
     Dates: start: 20151028
  6. BUPIVACAINE. [Suspect]
     Active Substance: BUPIVACAINE
     Dosage: 15.702 MG, \DAY
     Route: 037
     Dates: start: 20151013
  7. MORPHINE [Suspect]
     Active Substance: MORPHINE
     Dosage: 0.5234  MG/DAY
     Route: 037
     Dates: start: 20151013
  8. MORPHINE [Suspect]
     Active Substance: MORPHINE
     Dosage: 0.3511 MG/DAY
     Dates: start: 20151013
  9. MORPHINE [Suspect]
     Active Substance: MORPHINE
     Dosage: 0.3086, \DAY
     Dates: start: 20151125
  10. BUPIVACAINE. [Suspect]
     Active Substance: BUPIVACAINE
     Dosage: 10.533 MG, \DAY
     Route: 037
     Dates: start: 20151013
  11. BUPIVACAINE. [Suspect]
     Active Substance: BUPIVACAINE
     Dosage: 14.535 MG, \DAY
     Route: 037
     Dates: start: 20151028
  12. BUPIVACAINE. [Suspect]
     Active Substance: BUPIVACAINE
     Dosage: 7.498 MG, \DAY
     Route: 037
     Dates: start: 20151028
  13. COMPOUNDED BACLOFEN [Suspect]
     Active Substance: BACLOFEN
     Dosage: 52.66 ?G, \DAY
     Route: 037
     Dates: start: 20151013
  14. COMPOUNDED BACLOFEN [Suspect]
     Active Substance: BACLOFEN
     Dosage: 37.49 ?G, \DAY
     Route: 037
     Dates: start: 20151028
  15. BUPIVACAINE. [Suspect]
     Active Substance: BUPIVACAINE
     Dosage: 9.257 MG, \DAY
     Dates: start: 20151125

REACTIONS (9)
  - Pain [Recovered/Resolved]
  - Sedation [Recovered/Resolved]
  - Mental status changes [Recovered/Resolved]
  - Implant site extravasation [Recovered/Resolved]
  - Complication associated with device [Recovered/Resolved]
  - Dyskinesia [Recovered/Resolved]
  - Hallucination [Recovered/Resolved]
  - Lethargy [Recovered/Resolved]
  - Implant site pain [Unknown]

NARRATIVE: CASE EVENT DATE: 201510
